FAERS Safety Report 16361800 (Version 1)
Quarter: 2019Q2

REPORT INFORMATION
  Report Type: Spontaneous
  Country: US (occurrence: US)
  Receive Date: 20190419
  Receipt Date: 20190419
  Transmission Date: 20190711
  Serious: No
  Sender: FDA-Public Use
  Company Number: None

PATIENT
  Age: 28 Year
  Sex: Female

DRUGS (1)
  1. BOTOX [Suspect]
     Active Substance: ONABOTULINUMTOXINA
     Dosage: ?          OTHER FREQUENCY:OTHER
     Route: 030
     Dates: start: 201803

REACTIONS (2)
  - Migraine [None]
  - Product dose omission [None]

NARRATIVE: CASE EVENT DATE: 20190402
